FAERS Safety Report 7048421-5 (Version None)
Quarter: 2010Q4

REPORT INFORMATION
  Report Type: 
  Country: None (occurrence: None)
  Receive Date: 20101015
  Receipt Date: 20101008
  Transmission Date: 20110411
  Serious: Yes (Hospitalization)
  Sender: FDA-Public Use
  Company Number: US-US-EMD SERONO, INC.-7000935

PATIENT
  Sex: Female
  Weight: 72 kg

DRUGS (6)
  1. REBIF [Suspect]
     Indication: MULTIPLE SCLEROSIS
     Route: 058
     Dates: start: 20070319
  2. LISINOPRIL [Concomitant]
     Indication: HYPERTENSION
  3. PAROXETINE HCL [Concomitant]
     Indication: DEPRESSION
  4. CALCIUM WITH VITAMIN D [Concomitant]
  5. UNSPECIFIED NASAL SPRAY [Concomitant]
     Indication: SEASONAL ALLERGY
  6. UNSPECIFIED ALLERGY MEDICATION [Concomitant]
     Indication: SEASONAL ALLERGY

REACTIONS (8)
  - CHOLELITHIASIS [None]
  - DIABETES MELLITUS [None]
  - FATIGUE [None]
  - INJECTION SITE PAIN [None]
  - INSOMNIA [None]
  - OVARIAN CANCER [None]
  - PAIN [None]
  - PROCEDURAL PAIN [None]
